FAERS Safety Report 6294911-2 (Version None)
Quarter: 2009Q3

REPORT INFORMATION
  Report Type: 
  Country: None (occurrence: None)
  Receive Date: 20090731
  Receipt Date: 20090731
  Transmission Date: 20100115
  Serious: Yes (Other)
  Sender: FDA-Public Use
  Company Number: None

PATIENT
  Sex: Female
  Weight: 54.4316 kg

DRUGS (2)
  1. LYRICA [Suspect]
     Indication: NEUROPATHY PERIPHERAL
     Dosage: 1 A DAY
  2. TOPAMAX [Suspect]
     Dosage: 2 A DAY -DONT REMEMBER-

REACTIONS (1)
  - NO ADVERSE EVENT [None]
